FAERS Safety Report 19932365 (Version 1)
Quarter: 2021Q4

REPORT INFORMATION
  Report Type: Spontaneous
  Country: US (occurrence: US)
  Receive Date: 20211007
  Receipt Date: 20211007
  Transmission Date: 20220303
  Serious: Yes (Disabling)
  Sender: FDA-Public Use
  Company Number: None

PATIENT
  Age: 53 Year
  Sex: Male
  Weight: 128.25 kg

DRUGS (6)
  1. LOTRIMIN AF ANTIFUNGAL [Suspect]
     Active Substance: MICONAZOLE NITRATE
     Indication: Tinea cruris
     Dosage: ?          QUANTITY:2 SPRAY(S);
     Route: 061
  2. LOSARTAN [Concomitant]
     Active Substance: LOSARTAN
  3. PROZAC [Concomitant]
     Active Substance: FLUOXETINE HYDROCHLORIDE
  4. WELLBUTRIN [Concomitant]
     Active Substance: BUPROPION HYDROCHLORIDE
  5. ZANEX [Concomitant]
  6. MOTRIN [Concomitant]
     Active Substance: IBUPROFEN

REACTIONS (1)
  - Application site rash [None]

NARRATIVE: CASE EVENT DATE: 20210805
